FAERS Safety Report 8341264-1 (Version None)
Quarter: 2012Q2

REPORT INFORMATION
  Report Type: 
  Country: None (occurrence: None)
  Receive Date: 20120507
  Receipt Date: 20120503
  Transmission Date: 20120825
  Serious: Yes (Death)
  Sender: FDA-Public Use
  Company Number: US-B.I. PHARMACEUTICALS,INC./RIDGEFIELD-2012-BP-06411BP

PATIENT
  Sex: Female

DRUGS (3)
  1. MELOXICAM [Suspect]
     Dosage: AS NEEDED
  2. ASPIRIN [Suspect]
  3. PRADAXA [Suspect]
     Indication: ATRIAL FIBRILLATION
     Dosage: 150 MG
     Dates: start: 20110518

REACTIONS (1)
  - GASTRIC ULCER HAEMORRHAGE [None]
